FAERS Safety Report 7210361-6 (Version None)
Quarter: 2011Q1

REPORT INFORMATION
  Report Type: 
  Country: None (occurrence: None)
  Receive Date: 20110103
  Receipt Date: 20110103
  Transmission Date: 20110831
  Serious: No
  Sender: FDA-Public Use
  Company Number: None

PATIENT
  Age: 65 Year
  Sex: Female
  Weight: 52.6173 kg

DRUGS (2)
  1. ZICAM EXTREME CONGESTION RELIEF 12 HOUR FORMULA MATRIXX INITIATIVES, I [Suspect]
     Indication: SINUS CONGESTION
     Dosage: ONE SPRAY USED ONLY TWICE NASAL
     Route: 045
     Dates: start: 20101028, end: 20101029
  2. ZICAM EXTREME CONGESTION RELIEF 12 HOUR FORMULA MATRIXX INITIATIVES, I [Suspect]
     Indication: NASOPHARYNGITIS
     Dosage: ONE SPRAY USED ONLY TWICE NASAL
     Route: 045
     Dates: start: 20101028, end: 20101029

REACTIONS (3)
  - ANOSMIA [None]
  - AGEUSIA [None]
  - NO THERAPEUTIC RESPONSE [None]
